FAERS Safety Report 26082587 (Version 1)
Quarter: 2025Q4

REPORT INFORMATION
  Report Type: Spontaneous
  Country: RU (occurrence: RU)
  Receive Date: 20251124
  Receipt Date: 20251124
  Transmission Date: 20260118
  Serious: Yes (Other)
  Sender: ALEXION PHARMACEUTICALS
  Company Number: RU-ASTRAZENECA-202511EAF015268RU

PATIENT
  Age: 15 Year
  Sex: Female
  Weight: 46.5 kg

DRUGS (2)
  1. KOSELUGO [Suspect]
     Active Substance: SELUMETINIB
     Indication: Neoplasm
     Dosage: 70 MILLIGRAM, QD (10 MG (BATCH  NUMBER SL180), 25 MG (BATCH NUMBER SS438))
     Dates: start: 20250717
  2. KOSELUGO [Suspect]
     Active Substance: SELUMETINIB
     Dosage: 70 MILLIGRAM, QD (10 MG (BATCH  NUMBER SL180), 25 MG (BATCH NUMBER SS438)
     Dates: start: 20250717

REACTIONS (4)
  - Rash [Recovered/Resolved]
  - Dry skin [Recovered/Resolved]
  - Ingrowing nail [Recovered/Resolved]
  - Abdominal pain upper [Recovered/Resolved]

NARRATIVE: CASE EVENT DATE: 20250717
